FAERS Safety Report 4311402-6 (Version None)
Quarter: 2004Q1

REPORT INFORMATION
  Report Type: 
  Country: None (occurrence: None)
  Receive Date: 20040303
  Receipt Date: 20030814
  Transmission Date: 20041129
  Serious: Yes (Hospitalization, Other)
  Sender: FDA-Public Use
  Company Number: 200322429BWH

PATIENT
  Sex: Female

DRUGS (1)
  1. NIMOTOP [Suspect]
     Dosage: 60 MG,Q4HR,NI

REACTIONS (1)
  - HYPOTENSION [None]
